FAERS Safety Report 8800005 (Version 2)
Quarter: 2012Q4

REPORT INFORMATION
  Report Type: 
  Country: JP (occurrence: JP)
  Receive Date: 20120921
  Receipt Date: 20121005
  Transmission Date: 20130627
  Serious: Yes (Hospitalization, Other)
  Sender: FDA-Public Use
  Company Number: JP-ROCHE-1128896

PATIENT
  Age: 69 Year
  Sex: Male
  Weight: 73 kg

DRUGS (17)
  1. AVASTIN [Suspect]
     Indication: COLON CANCER METASTATIC
     Dosage: Dosage is uncertain.
     Route: 041
     Dates: start: 20111215, end: 20111229
  2. XELODA [Suspect]
     Indication: COLON CANCER METASTATIC
     Dosage: 2 weeks administration followed by 1 week rest
     Route: 048
     Dates: start: 20111215, end: 20111229
  3. XELODA [Suspect]
     Indication: COLON CANCER METASTATIC
     Dosage: 2 weeks administration followed by 1 week rest
     Route: 048
     Dates: start: 20120105, end: 20120119
  4. XELODA [Suspect]
     Indication: COLON CANCER METASTATIC
     Dosage: 2 weeks administration followed by 1 week rest
     Route: 048
     Dates: start: 20120126, end: 20120202
  5. XELODA [Suspect]
     Indication: COLON CANCER METASTATIC
     Dosage: Dosage is uncertain.
     Route: 048
     Dates: start: 20120705
  6. MAGNESIUM OXIDE [Suspect]
     Indication: CONSTIPATION
     Route: 048
     Dates: start: 20120107, end: 20120114
  7. ELPLAT [Concomitant]
     Indication: COLON CANCER METASTATIC
     Dosage: Dosage is uncertain.
     Route: 041
  8. GAMOFA [Concomitant]
     Route: 048
     Dates: end: 20120125
  9. PREDNISOLONE [Concomitant]
     Route: 048
     Dates: end: 20120204
  10. TERNELIN [Concomitant]
     Route: 048
     Dates: end: 20120204
  11. PROGRAF [Concomitant]
     Route: 048
     Dates: end: 20120204
  12. METHYCOBAL [Concomitant]
     Route: 048
     Dates: end: 20120204
  13. CELECOX [Concomitant]
     Route: 048
     Dates: end: 20120204
  14. METHOTREXATE [Concomitant]
     Dosage: 2-4mg in morning and 2mg in evening
     Route: 048
     Dates: end: 20120204
  15. TRINOSIN [Concomitant]
     Route: 048
     Dates: end: 20120204
  16. FOLIAMIN [Concomitant]
     Route: 048
     Dates: end: 20120204
  17. DIOVAN [Concomitant]
     Route: 048
     Dates: start: 20111222, end: 20120204

REACTIONS (10)
  - Diarrhoea [Recovered/Resolved]
  - Disseminated intravascular coagulation [Recovered/Resolved]
  - Vomiting [Recovered/Resolved]
  - Gastrointestinal mucosal disorder [Unknown]
  - Mucosal infection [Recovered/Resolved]
  - Circulatory collapse [Recovered/Resolved]
  - General physical health deterioration [Unknown]
  - Palmar-plantar erythrodysaesthesia syndrome [Recovered/Resolved]
  - Constipation [Recovered/Resolved]
  - Decreased appetite [Recovered/Resolved]
